FAERS Safety Report 8698778 (Version 3)
Quarter: 2014Q2

REPORT INFORMATION
  Report Type: Spontaneous
  Country: US (occurrence: US)
  Receive Date: 20120802
  Receipt Date: 20140508
  Transmission Date: 20141212
  Serious: Yes (Other)
  Sender: FDA-Public Use
  Company Number: US-ASTRAZENECA-2012SE51461

PATIENT
  Age: 70 Year
  Sex: Female
  Weight: 122.5 kg

DRUGS (10)
  1. NEXIUM [Suspect]
     Indication: GASTROOESOPHAGEAL REFLUX DISEASE
     Route: 048
  2. NEXIUM [Suspect]
     Indication: GASTRIC DISORDER
     Route: 048
  3. NEXIUM [Suspect]
     Indication: GASTROOESOPHAGEAL REFLUX DISEASE
     Route: 048
     Dates: start: 2010
  4. NEXIUM [Suspect]
     Indication: GASTRIC DISORDER
     Route: 048
     Dates: start: 2010
  5. TOPROL XL [Suspect]
     Indication: CARDIAC FAILURE
     Route: 048
     Dates: start: 1990
  6. TOPROL XL [Suspect]
     Indication: CARDIAC FAILURE
     Dosage: GENERIC, 6 PILLS
     Dates: start: 20140427, end: 20140429
  7. CATAPRES [Concomitant]
     Indication: BLOOD PRESSURE ABNORMAL
     Route: 048
     Dates: start: 1980
  8. HYDRALAZINE [Concomitant]
     Indication: BLOOD PRESSURE ABNORMAL
     Route: 048
     Dates: start: 1980
  9. DILTIAZEM [Concomitant]
     Indication: BLOOD PRESSURE ABNORMAL
     Route: 048
     Dates: start: 2012
  10. HYDROCORTISONE [Concomitant]
     Indication: ADRENAL INSUFFICIENCY
     Route: 048
     Dates: start: 2010

REACTIONS (12)
  - Chest pain [Not Recovered/Not Resolved]
  - Dyspnoea [Not Recovered/Not Resolved]
  - Cardiac failure congestive [Not Recovered/Not Resolved]
  - Pericardial effusion [Not Recovered/Not Resolved]
  - Regurgitation [Unknown]
  - Hyperchlorhydria [Unknown]
  - Cardiac disorder [Unknown]
  - Heart rate increased [Unknown]
  - Eructation [Unknown]
  - Abdominal discomfort [Unknown]
  - Off label use [Not Recovered/Not Resolved]
  - Intentional product misuse [Unknown]
